FAERS Safety Report 9481835 (Version 2)
Quarter: 2013Q3

REPORT INFORMATION
  Report Type: Spontaneous
  Country: CA (occurrence: CA)
  Receive Date: 20130828
  Receipt Date: 20130828
  Transmission Date: 20140515
  Serious: Yes (Hospitalization)
  Sender: FDA-Public Use
  Company Number: CA-AMGEN-KDL234905

PATIENT
  Age: 72 Year
  Sex: Female

DRUGS (2)
  1. ENBREL [Suspect]
     Indication: RHEUMATOID ARTHRITIS
     Dosage: 50 MG, QWK
     Route: 058
     Dates: start: 19990401, end: 20070506
  2. GLYCERYL TRINITRATE [Concomitant]

REACTIONS (8)
  - Cardiac disorder [Unknown]
  - Lung infection [Unknown]
  - Dyspnoea [Unknown]
  - Hypertension [Unknown]
  - Tachycardia [Unknown]
  - Pulmonary oedema [Unknown]
  - Muscle spasms [Unknown]
  - Chronic obstructive pulmonary disease [Unknown]
